FAERS Safety Report 8564291-8 (Version None)
Quarter: 2012Q3

REPORT INFORMATION
  Report Type: 
  Country: None (occurrence: None)
  Receive Date: 20120727
  Receipt Date: 20120727
  Transmission Date: 20120928
  Serious: Yes (Hospitalization)
  Sender: FDA-Public Use
  Company Number: None

PATIENT
  Age: 60 Year
  Sex: Female
  Weight: 80.2867 kg

DRUGS (8)
  1. MS CONTIN [Concomitant]
  2. LAPATINIB [Suspect]
     Indication: BREAST CANCER
     Dosage: 1250 MG PO
     Route: 048
     Dates: start: 20120312, end: 20120630
  3. MORPHINE SULFATE [Concomitant]
  4. ARMODAFINIL [Concomitant]
  5. DECADRON PHOSPHATE [Concomitant]
  6. EVEROLIMUS 5 MG- GLAXO-SMITH-KLINE [Suspect]
     Indication: BREAST CANCER
     Dosage: 5 MG PO
     Route: 048
     Dates: start: 20120312, end: 20120630
  7. AMBIEN [Concomitant]
  8. POTASSIUM CHLORIDE [Concomitant]

REACTIONS (7)
  - COUGH [None]
  - DYSPNOEA [None]
  - CHEST PAIN [None]
  - BREAST CANCER METASTATIC [None]
  - MEDIASTINAL MASS [None]
  - PLEURODESIS [None]
  - PLEURAL EFFUSION [None]
